FAERS Safety Report 6099505-X (Version None)
Quarter: 2009Q1

REPORT INFORMATION
  Report Type: 
  Country: None (occurrence: None)
  Receive Date: 20090303
  Receipt Date: 20090217
  Transmission Date: 20090719
  Serious: Yes (Other)
  Sender: FDA-Public Use
  Company Number: US-BAYER-200913536NA

PATIENT
  Age: 55 Year
  Sex: Male

DRUGS (1)
  1. LEUKINE [Suspect]
     Indication: MALIGNANT MELANOMA

REACTIONS (1)
  - MELANOMA RECURRENT [None]
